FAERS Safety Report 25199181 (Version 2)
Quarter: 2025Q2

REPORT INFORMATION
  Report Type: Spontaneous
  Country: US (occurrence: US)
  Receive Date: 20250415
  Receipt Date: 20250430
  Transmission Date: 20250716
  Serious: Yes (Hospitalization, Other)
  Sender: FERRING
  Company Number: US-FERRINGPH-2025FE01331

PATIENT

DRUGS (1)
  1. NOVAREL [Suspect]
     Active Substance: CHORIOGONADOTROPIN ALFA
     Indication: Product used for unknown indication
     Route: 065

REACTIONS (3)
  - Sepsis [Unknown]
  - Counterfeit product administered [Unknown]
  - Liquid product physical issue [Unknown]
